FAERS Safety Report 20615739 (Version 1)
Quarter: 2022Q1

REPORT INFORMATION
  Report Type: Spontaneous
  Country: US (occurrence: None)
  Receive Date: 20220318
  Receipt Date: 20220318
  Transmission Date: 20220423
  Serious: Yes (Hospitalization)
  Sender: FDA-Public Use
  Company Number: None

PATIENT
  Age: 29 Year
  Sex: Male

DRUGS (7)
  1. MIGLUSTAT [Suspect]
     Active Substance: MIGLUSTAT
     Indication: Niemann-Pick disease
     Dosage: FREQUENCY : DAILY;?
     Route: 048
     Dates: start: 20201105
  2. DIAZEPAM [Concomitant]
     Active Substance: DIAZEPAM
  3. FLUOXETINE CAP [Concomitant]
  4. LAMOTRIGINE [Concomitant]
     Active Substance: LAMOTRIGINE
  5. MIGLUSTAT CAP [Concomitant]
  6. MYORISAN CAP [Concomitant]
  7. OXYBUTYNIN TAB ER [Concomitant]

REACTIONS (1)
  - COVID-19 [None]

NARRATIVE: CASE EVENT DATE: 20220103
